FAERS Safety Report 5038506-7 (Version None)
Quarter: 2006Q2

REPORT INFORMATION
  Report Type: 
  Country: None (occurrence: None)
  Receive Date: 20060626
  Receipt Date: 20060626
  Transmission Date: 20061013
  Serious: Yes (Life-Threatening, Hospitalization, Other)
  Sender: FDA-Public Use
  Company Number: None

PATIENT
  Age: 70 Year
  Sex: Male
  Weight: 83.9154 kg

DRUGS (1)
  1. DURAGESIC-100 [Suspect]
     Indication: BACK PAIN
     Dosage: 72 HRS TRANSDERMAL
     Route: 062

REACTIONS (7)
  - DEMENTIA ALZHEIMER'S TYPE [None]
  - DIFFICULTY IN WALKING [None]
  - DRUG DEPENDENCE [None]
  - ILL-DEFINED DISORDER [None]
  - POISONING [None]
  - RENAL FAILURE [None]
  - RESPIRATORY FAILURE [None]
